FAERS Safety Report 7310844-4 (Version None)
Quarter: 2011Q1

REPORT INFORMATION
  Report Type: 
  Country: None (occurrence: None)
  Receive Date: 20110224
  Receipt Date: 20110216
  Transmission Date: 20110831
  Serious: Yes (Hospitalization)
  Sender: FDA-Public Use
  Company Number: FR-BAXTER-2010BH009352

PATIENT
  Age: 59 Year
  Sex: Female
  Weight: 40 kg

DRUGS (22)
  1. CORTANCYL [Concomitant]
     Dates: start: 20091015, end: 20091107
  2. RED BLOOD CELLS [Concomitant]
     Dates: start: 20091017, end: 20091102
  3. PERFALGAN [Concomitant]
     Indication: HYPERSENSITIVITY
     Dates: start: 20091104, end: 20091118
  4. DIAMICRON [Concomitant]
     Dates: start: 20091117
  5. MOPRAL [Concomitant]
     Dates: start: 20091214, end: 20100222
  6. AMOXICILLIN TRIHYDRATE [Concomitant]
     Indication: TOOTH ABSCESS
     Dates: start: 20100225, end: 20100304
  7. FEIBA [Suspect]
     Indication: ACQUIRED HAEMOPHILIA
     Route: 042
     Dates: start: 20091016, end: 20091019
  8. SPECIAFOLDINE [Concomitant]
     Indication: ANAEMIA
     Dates: start: 20091015, end: 20091118
  9. ESOMEPRAZOLE [Concomitant]
     Dates: start: 20091015
  10. SODIUM CHLORIDE [Concomitant]
     Indication: HYPONATRAEMIA
     Dates: start: 20091020, end: 20091107
  11. EFFERALGAN [Concomitant]
     Indication: TOOTH ABSCESS
     Dates: start: 20100222, end: 20100222
  12. FEIBA [Suspect]
     Indication: FACTOR VIII INHIBITION
     Route: 042
     Dates: start: 20091016, end: 20091019
  13. NOVORAPID [Concomitant]
     Indication: DIABETES MELLITUS
     Dates: start: 20091018, end: 20091125
  14. LASIX [Concomitant]
     Dates: start: 20091102, end: 20091102
  15. POLARAMINE [Concomitant]
     Indication: HYPERSENSITIVITY
     Dates: start: 20091104, end: 20091118
  16. KOREC [Concomitant]
     Indication: HYPERTENSION
  17. ACTONEL [Concomitant]
     Dates: start: 20091029, end: 20091112
  18. FORLAX [Concomitant]
     Dates: start: 20090101, end: 20091017
  19. MABTHERA [Concomitant]
     Indication: HAEMOPHILIA
     Dates: start: 20091104, end: 20091118
  20. CACIT D3 [Concomitant]
     Dates: start: 20091015, end: 20091213
  21. STEROGYL [Concomitant]
     Dates: start: 20091015, end: 20100303
  22. LANTUS [Concomitant]
     Indication: DIABETES MELLITUS
     Dates: start: 20091029, end: 20091113

REACTIONS (2)
  - OEDEMA PERIPHERAL [None]
  - WEIGHT INCREASED [None]
